FAERS Safety Report 24877683 (Version 1)
Quarter: 2025Q1

REPORT INFORMATION
  Report Type: Spontaneous
  Country: CN (occurrence: CN)
  Receive Date: 20250123
  Receipt Date: 20250123
  Transmission Date: 20250409
  Serious: Yes (Other)
  Sender: ACCORD
  Company Number: CN-Accord-465439

PATIENT
  Sex: Male

DRUGS (2)
  1. CARBOPLATIN [Suspect]
     Active Substance: CARBOPLATIN
     Indication: Neuroendocrine carcinoma of prostate
     Dates: start: 202204
  2. IRINOTECAN [Suspect]
     Active Substance: IRINOTECAN
     Indication: Neuroendocrine carcinoma of prostate
     Dates: start: 202204

REACTIONS (3)
  - Treatment failure [Unknown]
  - Myelosuppression [Unknown]
  - Fatigue [Unknown]

NARRATIVE: CASE EVENT DATE: 20220101
